FAERS Safety Report 13163210 (Version 3)
Quarter: 2017Q1

REPORT INFORMATION
  Report Type: Spontaneous
  Country: IT (occurrence: IT)
  Receive Date: 20170130
  Receipt Date: 20170214
  Transmission Date: 20170428
  Serious: Yes (Hospitalization)
  Sender: FDA-Public Use
  Company Number: IT-SA-2017SA011473

PATIENT
  Age: 55 Year
  Sex: Female
  Weight: 50 kg

DRUGS (1)
  1. LEMTRADA [Suspect]
     Active Substance: ALEMTUZUMAB
     Indication: MULTIPLE SCLEROSIS
     Route: 041
     Dates: start: 20161219, end: 20161223

REACTIONS (8)
  - Brain abscess [Unknown]
  - Aphasia [Recovering/Resolving]
  - Status epilepticus [Unknown]
  - Asthenia [Unknown]
  - Hemiparesis [Recovering/Resolving]
  - Lymphocyte count decreased [Not Recovered/Not Resolved]
  - Brain compression [Unknown]
  - Epilepsy [Unknown]

NARRATIVE: CASE EVENT DATE: 20170115
